FAERS Safety Report 12405960 (Version 1)
Quarter: 2016Q2

REPORT INFORMATION
  Report Type: Spontaneous
  Country: US (occurrence: None)
  Receive Date: 20160525
  Receipt Date: 20160525
  Transmission Date: 20160815
  Serious: No
  Sender: FDA-Public Use
  Company Number: None

PATIENT
  Age: 54 Year
  Sex: Female
  Weight: 86.18 kg

DRUGS (9)
  1. JARDIANCE [Concomitant]
     Active Substance: EMPAGLIFLOZIN
  2. WOMEN^S 50+ COMPLETE VITAMIN [Concomitant]
  3. FISH OIL [Concomitant]
     Active Substance: FISH OIL
  4. BYDUREON [Suspect]
     Active Substance: EXENATIDE
     Indication: DIABETES MELLITUS
     Dosage: 4 INJECTABLE PENS ONCE EVERY WEEK INTO THE MUSCLE
     Route: 030
     Dates: start: 20160410, end: 20160515
  5. L-THYROXINE [Concomitant]
     Active Substance: LEVOTHYROXINE
  6. VITAMIN D3 [Concomitant]
     Active Substance: CHOLECALCIFEROL
  7. ATORVASTATIN [Concomitant]
     Active Substance: ATORVASTATIN
  8. BIOTIN [Concomitant]
     Active Substance: BIOTIN
  9. VITAMIN B12 [Concomitant]
     Active Substance: CYANOCOBALAMIN

REACTIONS (2)
  - Nodule [None]
  - Skin disorder [None]

NARRATIVE: CASE EVENT DATE: 20160501
